FAERS Safety Report 5911529-9 (Version None)
Quarter: 2008Q4

REPORT INFORMATION
  Report Type: 
  Country: None (occurrence: None)
  Receive Date: 20081002
  Receipt Date: 20080918
  Transmission Date: 20090506
  Serious: Yes (Death)
  Sender: FDA-Public Use
  Company Number: MPS1-1000101

PATIENT
  Age: 34 Year
  Sex: Male

DRUGS (4)
  1. ALDURAZYME [Suspect]
     Indication: MUCOPOLYSACCHARIDOSIS
     Dosage: 34.8 MG, 1XW, INTRAVENOUS
     Route: 042
     Dates: start: 20030529, end: 20080905
  2. OXYCONTIN [Concomitant]
  3. SERTRALINE [Concomitant]
  4. FLOVENT (FLUCTICASONE PROPIONATE) [Concomitant]

REACTIONS (8)
  - ARRHYTHMIA [None]
  - ASPIRATION [None]
  - BLINDNESS UNILATERAL [None]
  - BLOOD IMMUNOGLOBULIN G INCREASED [None]
  - CARDIAC FAILURE [None]
  - PULMONARY HYPERTENSION [None]
  - SIALOADENITIS [None]
  - VASCULAR OCCLUSION [None]
